FAERS Safety Report 8467033-X (Version None)
Quarter: 2012Q2

REPORT INFORMATION
  Report Type: 
  Country: None (occurrence: None)
  Receive Date: 20120619
  Receipt Date: 20120604
  Transmission Date: 20120825
  Serious: Yes (Hospitalization, Other)
  Sender: FDA-Public Use
  Company Number: 2012MA007047

PATIENT
  Age: 56 Year
  Sex: Female

DRUGS (1)
  1. KADIAN [Suspect]
     Indication: BACK PAIN
     Dosage: ;INTH
     Route: 037
     Dates: start: 20000101

REACTIONS (9)
  - PARAPARESIS [None]
  - AREFLEXIA [None]
  - ARACHNOID CYST [None]
  - DRUG INEFFECTIVE [None]
  - SPINAL CORD COMPRESSION [None]
  - ARACHNOIDITIS [None]
  - PAIN [None]
  - PNEUMORRHACHIS [None]
  - NERVOUS SYSTEM DISORDER [None]
